FAERS Safety Report 6020369-4 (Version None)
Quarter: 2008Q4

REPORT INFORMATION
  Report Type: 
  Country: None (occurrence: None)
  Receive Date: 20081226
  Receipt Date: 20081218
  Transmission Date: 20090506
  Serious: Yes (Hospitalization)
  Sender: FDA-Public Use
  Company Number: IT-MERCK-0812ITA00025

PATIENT
  Age: 9 Week
  Sex: Male

DRUGS (2)
  1. SINGULAIR [Suspect]
     Indication: UPPER RESPIRATORY TRACT INFLAMMATION
     Route: 048
     Dates: start: 20081215, end: 20081215
  2. SINGULAIR [Suspect]
     Route: 048
     Dates: start: 20081101, end: 20081101

REACTIONS (3)
  - HYPOTONIA [None]
  - PALLOR [None]
  - VOMITING [None]
